FAERS Safety Report 12403594 (Version 7)
Quarter: 2018Q1

REPORT INFORMATION
  Report Type: Report from Study
  Country: FR (occurrence: FR)
  Receive Date: 20160525
  Receipt Date: 20180129
  Transmission Date: 20180508
  Serious: Yes (Hospitalization)
  Sender: FDA-Public Use
  Company Number: FR-ROCHE-1668800

PATIENT
  Age: 60 Year
  Sex: Male
  Weight: 89 kg

DRUGS (9)
  1. ATEZOLIZUMAB. [Suspect]
     Active Substance: ATEZOLIZUMAB
     Indication: LUNG SQUAMOUS CELL CARCINOMA STAGE IV
     Dosage: ON DAY 1 OF EACH 21-DAY CYCLE, AS PER PROTOCOL?MOST RECENT DOSE PRIOR TO EVENT: 09/SEP/2015 (1200 MG
     Route: 042
     Dates: start: 20150909
  2. NOZINAN [Concomitant]
     Active Substance: LEVOMEPROMAZINE
     Indication: EPILEPSY
  3. INEXIUM [Concomitant]
     Active Substance: ESOMEPRAZOLE
  4. TINZAPARIN [Concomitant]
     Active Substance: TINZAPARIN
     Indication: THROMBOSIS PROPHYLAXIS
     Route: 065
     Dates: start: 201511
  5. LOW MOLECULAR WEIGHT HEPARIN [Concomitant]
     Active Substance: UNSPECIFIED INGREDIENT
  6. DEPAKINE [Concomitant]
     Active Substance: VALPROATE SODIUM
     Indication: EPILEPSY
  7. NAB-PACLITAXEL [Suspect]
     Active Substance: PACLITAXEL
     Indication: LUNG SQUAMOUS CELL CARCINOMA STAGE IV
     Dosage: MOST RECENT DOSE PRIOR TO EVENT: 09/SEP/2015 (150 MG).?100 MILLIGRAMS PER METER SQUARED (MG/M2) ON D
     Route: 042
     Dates: start: 20150909
  8. PREVISCAN (FLUINDIONE) [Suspect]
     Active Substance: FLUINDIONE
     Indication: THROMBOSIS PROPHYLAXIS
     Route: 065
     Dates: end: 20151124
  9. CARBOPLATIN. [Suspect]
     Active Substance: CARBOPLATIN
     Indication: LUNG SQUAMOUS CELL CARCINOMA STAGE IV
     Dosage: AREA UNDER THE CONCENTRATION CURVE (AUC) 6 MILLIGRAMS PER MILLILITER PER MINUTE (MG/ML/MIN), AS PER
     Route: 042
     Dates: start: 20150909

REACTIONS (1)
  - Epistaxis [Recovered/Resolved]

NARRATIVE: CASE EVENT DATE: 20150909
